FAERS Safety Report 4603485-0 (Version None)
Quarter: 2005Q2

REPORT INFORMATION
  Report Type: 
  Country: None (occurrence: None)
  Receive Date: 20050223
  Receipt Date: 20041130
  Transmission Date: 20051028
  Serious: No
  Sender: FDA-Public Use
  Company Number: 210799

PATIENT
  Age: 42 Year
  Sex: Female

DRUGS (5)
  1. RAPTIVA [Suspect]
     Indication: PSORIASIS
     Dosage: 1 MG/KG, 1/WEEK, SUBCUTANEOUS
     Route: 058
     Dates: start: 22040210, end: 20040428
  2. RAPTIVA [Suspect]
     Indication: PSORIASIS
     Dosage: 1 MG/KG, 1/WEEK, SUBCUTANEOUS
     Route: 058
     Dates: end: 20040924
  3. NEXIUM [Concomitant]
  4. UVB (PHOTOTHERAPY UVB) [Concomitant]
  5. PUVA (PHOTOTHERAPY, PSORALEN) [Concomitant]

REACTIONS (1)
  - PSORIASIS [None]
